FAERS Safety Report 5105564-0 (Version None)
Quarter: 2006Q3

REPORT INFORMATION
  Report Type: 
  Country: None (occurrence: None)
  Receive Date: 20060915
  Receipt Date: 20050621
  Transmission Date: 20061208
  Serious: Yes (Hospitalization, Disabling)
  Sender: FDA-Public Use
  Company Number: US-ROCHE-408673

PATIENT
  Age: 22 Year
  Sex: Female
  Weight: 83.5 kg

DRUGS (2)
  1. ACCUTANE [Suspect]
     Indication: ACNE
     Route: 048
     Dates: start: 20030415
  2. ACCUTANE [Suspect]
     Route: 048
     Dates: start: 20030626, end: 20030915

REACTIONS (26)
  - ANXIETY [None]
  - BIPOLAR DISORDER [None]
  - COLITIS [None]
  - COLITIS ULCERATIVE [None]
  - CROHN'S DISEASE [None]
  - DEPRESSION [None]
  - DRY EYE [None]
  - DRY SKIN [None]
  - FATIGUE [None]
  - GASTROINTESTINAL DISORDER [None]
  - HEADACHE [None]
  - HYPERLIPIDAEMIA [None]
  - ILEITIS [None]
  - INFLAMMATORY BOWEL DISEASE [None]
  - INSOMNIA [None]
  - INTESTINAL HAEMORRHAGE [None]
  - LIP DRY [None]
  - MAJOR DEPRESSION [None]
  - MIGRAINE [None]
  - MULTI-ORGAN DISORDER [None]
  - NAUSEA [None]
  - RECTAL HAEMORRHAGE [None]
  - STRESS [None]
  - SUICIDAL IDEATION [None]
  - TRICHOTILLOMANIA [None]
  - WEIGHT INCREASED [None]
